FAERS Safety Report 12705307 (Version 1)
Quarter: 2016Q3

REPORT INFORMATION
  Report Type: Spontaneous
  Country: AT (occurrence: AT)
  Receive Date: 20160831
  Receipt Date: 20160831
  Transmission Date: 20161109
  Serious: Yes (Other)
  Sender: FDA-Public Use
  Company Number: AT-009507513-1608AUT003255

PATIENT
  Age: 67 Year
  Sex: Female

DRUGS (4)
  1. ATOZET 10 MG/80 MG FILMTABLETTEN [Suspect]
     Active Substance: ATORVASTATIN CALCIUM\EZETIMIBE
     Dosage: UNK
     Route: 048
     Dates: start: 20160308, end: 201607
  2. TEBOFORTAN [Concomitant]
     Active Substance: GINKGO
     Indication: NERVOUS SYSTEM DISORDER
     Dosage: STRENGTH: 40 (UNIT NOT REPROTED), 1-0-1
  3. ENALAPRIL [Concomitant]
     Active Substance: ENALAPRIL
     Indication: HYPERTENSION
     Dosage: STRENGTH:20 (UNIT NOT REPORTED), 0-0-1
  4. ENALAPRIL MALEATE (+) HYDROCHLOROTHIAZIDE [Concomitant]
     Active Substance: ENALAPRIL MALEATE\HYDROCHLOROTHIAZIDE
     Indication: HYPERTENSION
     Dosage: STRENGTH: 20/12 (UNIT NOT REPORTED), 1-0-1

REACTIONS (3)
  - Blood cholesterol increased [Unknown]
  - Blood triglycerides increased [Unknown]
  - Low density lipoprotein increased [Unknown]

NARRATIVE: CASE EVENT DATE: 2016
